FAERS Safety Report 4389067-7 (Version None)
Quarter: 2004Q2

REPORT INFORMATION
  Report Type: 
  Country: None (occurrence: None)
  Receive Date: 20040628
  Receipt Date: 20040614
  Transmission Date: 20050107
  Serious: Yes (Hospitalization)
  Sender: FDA-Public Use
  Company Number: 04P-056-0263854-00

PATIENT
  Age: 37 Year
  Sex: Male
  Weight: 62 kg

DRUGS (20)
  1. KALETRA [Suspect]
     Indication: HIV INFECTION
     Dosage: 3 CAPSULE, 2 IN 1 D, PER ORAL
     Route: 048
     Dates: start: 20020101, end: 20020201
  2. KALETRA [Suspect]
     Indication: HIV INFECTION
     Dosage: 3 CAPSULE, 2 IN 1 D, PER ORAL
     Route: 048
     Dates: start: 20031119
  3. RITONAVIR [Suspect]
     Indication: HIV INFECTION
     Dates: start: 19950101, end: 20030501
  4. DIDANOSINE [Suspect]
     Indication: HIV INFECTION
     Dates: start: 19950101, end: 20030501
  5. STAVUDINE [Suspect]
     Indication: HIV INFECTION
     Dates: start: 19950101, end: 20030501
  6. INDINAVIR [Suspect]
     Indication: HIV INFECTION
     Dates: start: 19950101, end: 20030501
  7. NELFINAVIR MESILATE [Suspect]
     Indication: HIV INFECTION
     Dates: start: 19950101, end: 20030101
  8. NELFINAVIR MESILATE [Suspect]
     Indication: HIV INFECTION
     Dates: start: 20031119
  9. DOXORUBICIN HCL [Suspect]
     Indication: KAPOSI'S SARCOMA
     Dosage: 35 MG, 1 IN 1 D, INTRAVENOUS
     Route: 042
     Dates: start: 20020101, end: 20020101
  10. DOXORUBICIN HCL [Suspect]
     Indication: KAPOSI'S SARCOMA
     Dosage: 35 MG, 1 IN 1 D, INTRAVENOUS
     Route: 042
     Dates: start: 20031118
  11. ZIDOVUDINE W/LAMIVUDINE [Suspect]
     Indication: HIV INFECTION
     Dates: start: 20020101, end: 20020201
  12. GABAPENTIN [Suspect]
     Indication: CONVULSION
     Dates: start: 20020101, end: 20020201
  13. VIREAD [Suspect]
     Indication: HIV INFECTION
     Dosage: 245 MG, 1 IN 1 D, PER ORAL
     Route: 048
     Dates: start: 20031119
  14. ABACAVIR SULFATE [Suspect]
     Indication: HIV INFECTION
     Dosage: 300 MG, 2 IN 1 D, PER ORAL
     Route: 048
     Dates: start: 20031119
  15. ONDANSETRON HCL [Suspect]
     Indication: DRUG USE FOR UNKNOWN INDICATION
     Dosage: PER ORAL
     Route: 048
     Dates: start: 20031118
  16. MOTILIUM [Suspect]
     Indication: DRUG USE FOR UNKNOWN INDICATION
     Dosage: PER ORAL
     Route: 048
     Dates: start: 20031118
  17. ZALCITABINE [Concomitant]
  18. LAMIVUDINE [Concomitant]
  19. EFAVIRENZ [Concomitant]
  20. IDOXURIDINE [Concomitant]

REACTIONS (25)
  - ABDOMINAL PAIN [None]
  - ABDOMINAL PAIN UPPER [None]
  - ABDOMINAL TENDERNESS [None]
  - ALANINE AMINOTRANSFERASE INCREASED [None]
  - ASPARTATE AMINOTRANSFERASE INCREASED [None]
  - ASTHENIA [None]
  - BLOOD ALKALINE PHOSPHATASE INCREASED [None]
  - DRUG INTOLERANCE [None]
  - DYSAESTHESIA [None]
  - FOLATE DEFICIENCY [None]
  - GAMMA-GLUTAMYLTRANSFERASE INCREASED [None]
  - HEPATOCELLULAR DAMAGE [None]
  - HYPERAESTHESIA [None]
  - HYPERLACTACIDAEMIA [None]
  - NEURALGIA [None]
  - NEUTROPENIA [None]
  - OEDEMA [None]
  - PAIN [None]
  - PANCREATIC DISORDER [None]
  - PANCYTOPENIA [None]
  - PULMONARY HYPERTENSION [None]
  - RASH [None]
  - RENAL FAILURE [None]
  - RENAL FAILURE CHRONIC [None]
  - TRANSAMINASES INCREASED [None]
